FAERS Safety Report 5262520-X (Version None)
Quarter: 2007Q1

REPORT INFORMATION
  Report Type: 
  Country: None (occurrence: None)
  Receive Date: 20070312
  Receipt Date: 20070305
  Transmission Date: 20070707
  Serious: Yes (Other)
  Sender: FDA-Public Use
  Company Number: 2007PK00584

PATIENT
  Age: 51 Year
  Sex: Female
  Weight: 88 kg

DRUGS (3)
  1. SYMBICORT [Suspect]
     Indication: CHRONIC OBSTRUCTIVE PULMONARY DISEASE
     Dosage: 320/9 ONE INHALATION BID
     Route: 055
     Dates: start: 20060613
  2. BERODUAL [Concomitant]
     Route: 055
  3. THEOPHYLLINE [Concomitant]
     Route: 048

REACTIONS (2)
  - DYSPHONIA [None]
  - OROPHARYNGITIS FUNGAL [None]
